FAERS Safety Report 10019789 (Version 2)
Quarter: 2014Q1

REPORT INFORMATION
  Report Type: Spontaneous
  Country: US (occurrence: US)
  Receive Date: 20140318
  Receipt Date: 20140318
  Transmission Date: 20141002
  Serious: Yes (Death, Hospitalization)
  Sender: FDA-Public Use
  Company Number: US-ACTELION-A-US2014-95465

PATIENT
  Age: 61 Year
  Sex: Female

DRUGS (10)
  1. VELETRI [Suspect]
     Indication: PULMONARY ARTERIAL HYPERTENSION
     Dosage: 14 NG/KG, PER MIN
     Route: 042
     Dates: start: 20131119, end: 20140306
  2. LETAIRIS [Concomitant]
     Dosage: 10 MG, QD
  3. BUMEX [Concomitant]
     Dosage: 2 MG, QD
  4. DIGOXIN [Concomitant]
     Dosage: 0.125 MG, QD
  5. METOLAZONE [Concomitant]
     Dosage: 2.5 MG, QD
  6. PROTONIX [Concomitant]
     Dosage: 40 MG, QD
  7. FERROUS SULFATE [Concomitant]
     Dosage: 325 MG, BID
  8. MAGNESIUM OXIDE [Concomitant]
     Dosage: 800 MG, BID
  9. K-DUR [Concomitant]
     Dosage: 80 MEQ, QD
  10. SILDENAFIL [Concomitant]

REACTIONS (2)
  - Death [Fatal]
  - Dyspnoea [Not Recovered/Not Resolved]
